FAERS Safety Report 18877953 (Version 1)
Quarter: 2021Q1

REPORT INFORMATION
  Report Type: Spontaneous
  Country: US (occurrence: US)
  Receive Date: 20210210
  Receipt Date: 20210210
  Transmission Date: 20210420
  Serious: Yes (Hospitalization)
  Sender: FDA-Public Use
  Company Number: None

PATIENT
  Age: 68 Year
  Sex: Female

DRUGS (11)
  1. XARELTO [Concomitant]
     Active Substance: RIVAROXABAN
  2. OXYCODONE [Concomitant]
     Active Substance: OXYCODONE
  3. ATORVASTATIN [Concomitant]
     Active Substance: ATORVASTATIN
  4. LEXAPRO [Concomitant]
     Active Substance: ESCITALOPRAM OXALATE
  5. LEVOTHYROXINE. [Concomitant]
     Active Substance: LEVOTHYROXINE
  6. FORTEO [Suspect]
     Active Substance: TERIPARATIDE
     Indication: RHEUMATOID ARTHRITIS
     Route: 058
     Dates: start: 20200730
  7. TRAZODONE [Concomitant]
     Active Substance: TRAZODONE HYDROCHLORIDE
  8. OXYCONTIN [Concomitant]
     Active Substance: OXYCODONE HYDROCHLORIDE
  9. METHOCARBAM [Concomitant]
     Active Substance: METHOCARBAMOL
  10. BUPROPION. [Concomitant]
     Active Substance: BUPROPION
  11. CLINDAMYCIN GEL [Concomitant]
     Active Substance: CLINDAMYCIN PHOSPHATE

REACTIONS (2)
  - Illness [None]
  - Therapy interrupted [None]
